FAERS Safety Report 17039441 (Version 2)
Quarter: 2024Q2

REPORT INFORMATION
  Report Type: Spontaneous
  Country: JP (occurrence: JP)
  Receive Date: 20191115
  Receipt Date: 20240618
  Transmission Date: 20240716
  Serious: Yes (Other)
  Sender: FDA-Public Use
  Company Number: JP-MSD-M2018-10798

PATIENT
  Age: 63 Year
  Sex: Male
  Weight: 45 kg

DRUGS (10)
  1. KEYTRUDA [Suspect]
     Active Substance: PEMBROLIZUMAB
     Indication: Non-small cell lung cancer
     Dosage: 200 MILLIGRAM, Q3W
     Route: 041
     Dates: start: 20171012, end: 20180314
  2. KEYTRUDA [Suspect]
     Active Substance: PEMBROLIZUMAB
     Dosage: 200 MILLIGRAM, Q3W
     Route: 041
     Dates: start: 20180417, end: 201903
  3. KEYTRUDA [Suspect]
     Active Substance: PEMBROLIZUMAB
     Dosage: 200 MILLIGRAM, Q3W
     Route: 041
     Dates: start: 2019
  4. ENZYME NOS [Suspect]
     Active Substance: UNSPECIFIED INGREDIENT
     Dosage: UNK
     Route: 048
  5. AMLODIPINE BESYLATE\IRBESARTAN [Concomitant]
     Active Substance: AMLODIPINE BESYLATE\IRBESARTAN
     Indication: Hypertension
     Dosage: 1 DF, QD
     Route: 048
     Dates: start: 2014
  6. DESLORATADINE [Concomitant]
     Active Substance: DESLORATADINE
     Indication: Pruritus
     Dosage: 5 MG, QD
     Route: 048
     Dates: start: 20180131, end: 20180322
  7. FUDOSTEINE [Concomitant]
     Active Substance: FUDOSTEINE
     Dosage: UNK
     Route: 048
     Dates: end: 20191025
  8. SPIRIVA [Concomitant]
     Active Substance: TIOTROPIUM BROMIDE MONOHYDRATE
     Dosage: UNK
     Route: 048
     Dates: end: 20191025
  9. ANAGLIPTIN [Concomitant]
     Active Substance: ANAGLIPTIN
     Dosage: UNK
     Route: 048
     Dates: end: 20191025
  10. ERYTHROMYCIN [Concomitant]
     Active Substance: ERYTHROMYCIN
     Dosage: UNK
     Route: 048
     Dates: end: 20191025

REACTIONS (6)
  - Dermatitis exfoliative generalised [Recovering/Resolving]
  - Immune-mediated pancreatitis [Recovered/Resolved]
  - Steatorrhoea [Unknown]
  - Aspartate aminotransferase increased [Recovered/Resolved]
  - Alanine aminotransferase increased [Recovered/Resolved]
  - Blood alkaline phosphatase increased [Recovered/Resolved]

NARRATIVE: CASE EVENT DATE: 20180221
